FAERS Safety Report 6755984-3 (Version None)
Quarter: 2010Q2

REPORT INFORMATION
  Report Type: 
  Country: None (occurrence: None)
  Receive Date: 20100604
  Receipt Date: 20100531
  Transmission Date: 20101027
  Serious: Yes (Death, Life-Threatening, Hospitalization)
  Sender: FDA-Public Use
  Company Number: PHHY2010JP10576

PATIENT
  Sex: Female
  Weight: 80 kg

DRUGS (10)
  1. SANDOSTATIN LAR [Suspect]
     Indication: ACROMEGALY
     Dosage: 20 MG EVERY FOUR WEEKS
     Route: 030
     Dates: start: 20091109, end: 20100106
  2. ADALAT [Concomitant]
     Indication: HYPERTENSION
     Dosage: 40 MG, UNK
     Route: 048
     Dates: start: 20080128, end: 20100105
  3. MICARDIS [Concomitant]
     Indication: HYPERTENSION
     Dosage: 40 MG, UNK
     Dates: start: 20080128, end: 20100105
  4. URINORM [Concomitant]
     Indication: HYPERURICAEMIA
     Dosage: 50 MG, UNK
     Dates: start: 20080128, end: 20100105
  5. RENIVACE [Concomitant]
     Indication: HYPERTENSION
     Dosage: 10 MG, UNK
     Route: 048
     Dates: start: 20080128, end: 20100105
  6. GLUCOBAY [Concomitant]
     Indication: DIABETES MELLITUS
     Dosage: 150 MG, UNK
     Route: 048
     Dates: start: 20080128, end: 20100105
  7. ADETPHOS [Concomitant]
     Indication: VERTIGO
     Dosage: 100 MG, UNK
     Route: 048
     Dates: start: 20080128, end: 20100105
  8. BUFFERIN [Concomitant]
     Dosage: 81 MG, UNK
     Route: 048
     Dates: start: 20080128, end: 20100106
  9. HEPARIN [Concomitant]
     Indication: PULMONARY INFARCTION
     Dosage: 10000 DF, UNK
     Route: 042
     Dates: start: 20100114, end: 20100122
  10. KALIMATE [Concomitant]
     Indication: HYPERKALAEMIA
     Dosage: 30 MG, UNK
     Dates: start: 20100119

REACTIONS (14)
  - ACIDOSIS [None]
  - CARDIAC ARREST [None]
  - CARDIAC FAILURE [None]
  - DEVICE RELATED INFECTION [None]
  - GENERAL PHYSICAL HEALTH DETERIORATION [None]
  - HAEMORRHAGIC INFARCTION [None]
  - PNEUMONIA [None]
  - PULMONARY HYPERTENSION [None]
  - PULMONARY INFARCTION [None]
  - PYREXIA [None]
  - RESPIRATORY FAILURE [None]
  - SEPSIS [None]
  - STAPHYLOCOCCAL INFECTION [None]
  - STUPOR [None]
